FAERS Safety Report 20688605 (Version 1)
Quarter: 2022Q2

REPORT INFORMATION
  Report Type: Spontaneous
  Country: FR (occurrence: None)
  Receive Date: 20220408
  Receipt Date: 20220408
  Transmission Date: 20220720
  Serious: Yes (Other)
  Sender: FDA-Public Use
  Company Number: 2022A139278

PATIENT
  Age: 69 Year
  Sex: Female

DRUGS (4)
  1. SYMBICORT [Interacting]
     Active Substance: BUDESONIDE\FORMOTEROL FUMARATE DIHYDRATE
     Indication: Chronic obstructive pulmonary disease
     Dosage: 320/9 UG PER DOSE, 400 MICROGRAMS, UNKNOWN FREQ
     Route: 055
     Dates: start: 2002, end: 2010
  2. SYMBICORT [Interacting]
     Active Substance: BUDESONIDE\FORMOTEROL FUMARATE DIHYDRATE
     Indication: Chronic obstructive pulmonary disease
     Dosage: 160/4.5 UG PER DOSE,200 MICROGRAMS, UNKNOWN FREQ. UNKNOWN
     Route: 055
     Dates: start: 2010
  3. SYMBICORT [Interacting]
     Active Substance: BUDESONIDE\FORMOTEROL FUMARATE DIHYDRATE
     Indication: Chronic obstructive pulmonary disease
     Dosage: 320/9 UG PER DOSE, 400 MICROGRAMS, UNKNOWN FREQ UNKNOWN
     Route: 055
  4. KARDEGIC [Interacting]
     Active Substance: ASPIRIN DL-LYSINE
     Dosage: 75.0MG UNKNOWN
     Route: 065
     Dates: start: 2005

REACTIONS (3)
  - Drug interaction [Unknown]
  - Pulmonary haemorrhage [Unknown]
  - Arteritis [Unknown]

NARRATIVE: CASE EVENT DATE: 20100101
